FAERS Safety Report 4595873-6 (Version None)
Quarter: 2005Q1

REPORT INFORMATION
  Report Type: 
  Country: None (occurrence: None)
  Receive Date: 20050224
  Receipt Date: 20050209
  Transmission Date: 20050727
  Serious: Yes (Life-Threatening, Hospitalization, Other)
  Sender: FDA-Public Use
  Company Number: JP_040603521

PATIENT
  Age: 62 Year
  Sex: Male
  Weight: 62 kg

DRUGS (9)
  1. GEMZAR [Suspect]
     Indication: PANCREATIC CARCINOMA
     Dosage: 1600 MG OTHER
     Dates: start: 20030313, end: 20040108
  2. MS CONTIN [Concomitant]
  3. NORVASC [Concomitant]
  4. KAYEXALATE [Concomitant]
  5. MAGNESIUM OXIDE [Concomitant]
  6. ALOSENN [Concomitant]
  7. FAMOTIDINE [Concomitant]
  8. METHYCOBAL (MECOBALAMIN) [Concomitant]
  9. LOXONIN (LOXOPROFEN SODIUM) [Concomitant]

REACTIONS (18)
  - BLOOD ALBUMIN DECREASED [None]
  - BLOOD CREATININE INCREASED [None]
  - CARDIAC FAILURE [None]
  - DYSPNOEA EXERTIONAL [None]
  - FACE OEDEMA [None]
  - GENERAL NUTRITION DISORDER [None]
  - GENERALISED OEDEMA [None]
  - HYDROCELE [None]
  - MALIGNANT NEOPLASM PROGRESSION [None]
  - NAUSEA [None]
  - OEDEMA PERIPHERAL [None]
  - PANCREATIC CARCINOMA [None]
  - PERICARDIAL EFFUSION [None]
  - PLEURAL EFFUSION [None]
  - PNEUMONIA BACTERIAL [None]
  - PROTEIN TOTAL DECREASED [None]
  - PULMONARY OEDEMA [None]
  - PYREXIA [None]
